FAERS Safety Report 9866749 (Version 1)
Quarter: 2014Q1

REPORT INFORMATION
  Report Type: Spontaneous
  Country: US (occurrence: US)
  Receive Date: 20140204
  Receipt Date: 20140204
  Transmission Date: 20141002
  Serious: Yes (Other)
  Sender: FDA-Public Use
  Company Number: US-BRISTOL-MYERS SQUIBB COMPANY-20096657

PATIENT
  Age: 80 Year
  Sex: 0

DRUGS (1)
  1. WARFARIN SODIUM [Suspect]

REACTIONS (2)
  - Prostate cancer [Unknown]
  - Epistaxis [Unknown]
